FAERS Safety Report 7368817-1 (Version None)
Quarter: 2011Q1

REPORT INFORMATION
  Report Type: 
  Country: None (occurrence: None)
  Receive Date: 20110323
  Receipt Date: 20100908
  Transmission Date: 20110831
  Serious: Yes (Hospitalization)
  Sender: FDA-Public Use
  Company Number: US-BAYER-201028184NA

PATIENT
  Sex: Female
  Weight: 104.31 kg

DRUGS (29)
  1. ADVAIR DISKUS 100/50 [Concomitant]
     Indication: DYSPNOEA
  2. ZOLOFT [Concomitant]
     Indication: DEPRESSION
     Dosage: UNK
     Dates: start: 20020825, end: 20020913
  3. ALLEGRA-D 12 HOUR [Concomitant]
     Indication: MULTIPLE ALLERGIES
     Dosage: UNK
     Dates: start: 20020101
  4. ZANAFLEX [Concomitant]
     Indication: MUSCLE SPASMS
  5. PREDNISONE [Concomitant]
  6. YASMIN [Suspect]
     Dosage: UNK
     Dates: start: 20060825, end: 20060913
  7. RISPERDAL [Concomitant]
     Indication: ANXIETY
  8. ALUPENT [Concomitant]
  9. KADIAN [Concomitant]
     Indication: PAIN
  10. ZYPREXA [Concomitant]
  11. ADVAIR DISKUS 100/50 [Concomitant]
     Indication: ASTHMA
  12. DIAZEPAM [Concomitant]
  13. NEXIUM [Concomitant]
  14. COPAXONE [Concomitant]
     Indication: MULTIPLE SCLEROSIS
     Dosage: UNK
     Dates: start: 20020825, end: 20020913
  15. PROVIGIL [Concomitant]
     Indication: FATIGUE
  16. NAPROXEN [Concomitant]
  17. AMBIEN [Concomitant]
  18. TRAMADOL HCL [Concomitant]
     Indication: MIGRAINE
  19. WELLBUTRIN [Concomitant]
     Dosage: UNK
     Dates: start: 20020904, end: 20020913
  20. BACLOFEN [Concomitant]
     Indication: MUSCLE RELAXANT THERAPY
  21. YASMIN [Suspect]
     Indication: CONTRACEPTION
     Dosage: UNK UNK, QD
     Route: 048
     Dates: start: 20020710, end: 20020913
  22. PERCOCET [Concomitant]
     Indication: PAIN
  23. UNCODEABLE ^INVESTIGATIONAL DRUG^ [Concomitant]
  24. VIOXX [Concomitant]
     Indication: ANTIINFLAMMATORY THERAPY
  25. TOPAMAX [Concomitant]
  26. OXYCONTIN [Concomitant]
     Indication: PAIN
  27. SINGULAIR [Concomitant]
     Indication: DYSPNOEA
     Dosage: UNK
     Dates: start: 20020101
  28. SINGULAIR [Concomitant]
     Indication: ASTHMA
  29. ALBUTEROL [Concomitant]
     Indication: ASTHMA

REACTIONS (3)
  - PAIN [None]
  - DEPRESSION [None]
  - PULMONARY EMBOLISM [None]
